FAERS Safety Report 7458451-7 (Version None)
Quarter: 2011Q2

REPORT INFORMATION
  Report Type: 
  Country: None (occurrence: None)
  Receive Date: 20110504
  Receipt Date: 20110426
  Transmission Date: 20111010
  Serious: Yes (Death, Life-Threatening, Disabling)
  Sender: FDA-Public Use
  Company Number: B0716447A

PATIENT
  Sex: Female
  Weight: 29 kg

DRUGS (10)
  1. PREDONINE [Concomitant]
     Dosage: 60MG PER DAY
     Dates: start: 20080202, end: 20080212
  2. GASTER [Concomitant]
     Dosage: 30MG PER DAY
     Route: 042
     Dates: start: 20080202, end: 20080216
  3. ALKERAN [Suspect]
     Indication: CORD BLOOD TRANSPLANT THERAPY
     Dosage: 70MG PER DAY
     Route: 042
     Dates: start: 20080201, end: 20080202
  4. FLUDARA [Concomitant]
     Indication: CORD BLOOD TRANSPLANT THERAPY
     Dosage: 30MGM2 PER DAY
     Route: 042
     Dates: start: 20080129, end: 20080131
  5. FUROSEMIDE [Concomitant]
     Dosage: 30MG PER DAY
     Route: 042
     Dates: start: 20080201, end: 20080214
  6. KYTRIL [Concomitant]
     Route: 042
     Dates: start: 20080202, end: 20080202
  7. NAFAMOSTAT [Concomitant]
     Dosage: 400MG PER DAY
     Route: 042
     Dates: start: 20080202, end: 20080216
  8. MEROPENEM [Concomitant]
     Dosage: .5G PER DAY
     Route: 042
     Dates: start: 20080202, end: 20080212
  9. CYCLOSPORINE [Concomitant]
     Indication: IMMUNOSUPPRESSION
     Dosage: 20MG PER DAY
     Route: 065
     Dates: start: 20080205, end: 20080216
  10. VICCLOX [Concomitant]
     Dosage: 750MG PER DAY
     Route: 042
     Dates: start: 20080202, end: 20080214

REACTIONS (4)
  - PANCREATITIS ACUTE [None]
  - HEPATIC FAILURE [None]
  - RESPIRATORY FAILURE [None]
  - EPSTEIN-BARR VIRUS INFECTION [None]
